FAERS Safety Report 5483967-2 (Version None)
Quarter: 2007Q4

REPORT INFORMATION
  Report Type: 
  Country: None (occurrence: None)
  Receive Date: 20071012
  Receipt Date: 20071003
  Transmission Date: 20080405
  Serious: Yes (Other)
  Sender: FDA-Public Use
  Company Number: BR-ROCHE-522841

PATIENT
  Age: 53 Year
  Sex: Male

DRUGS (1)
  1. PEGASYS [Suspect]
     Indication: HEPATITIS C
     Dosage: STRENGTH REPORTED: 180 MUG/ 0.5 ML. FORM REPORTED: VIAL
     Route: 058
     Dates: start: 20040101, end: 20040101

REACTIONS (1)
  - ANKYLOSING SPONDYLITIS [None]
